FAERS Safety Report 8202571-6 (Version None)
Quarter: 2012Q1

REPORT INFORMATION
  Report Type: 
  Country: None (occurrence: None)
  Receive Date: 20120312
  Receipt Date: 20120308
  Transmission Date: 20120608
  Serious: Yes (Life-Threatening, Hospitalization, Other)
  Sender: FDA-Public Use
  Company Number: PHHY2012DE008779

PATIENT
  Sex: Male
  Weight: 87 kg

DRUGS (12)
  1. CEFUROXIME [Concomitant]
     Indication: STAPHYLOCOCCAL INFECTION
     Dosage: 1.5 G/D
     Route: 042
     Dates: start: 20110801, end: 20110811
  2. RIFAMPICIN [Suspect]
     Indication: ENDOCARDITIS STAPHYLOCOCCAL
  3. OXACILLIN [Concomitant]
  4. PANTOPRAZOLE [Concomitant]
     Indication: PROPHYLAXIS AGAINST GASTROINTESTINAL ULCER
     Dosage: 40 MG, QD
     Route: 048
     Dates: start: 20110716
  5. DAPTOMYCIN [Suspect]
     Indication: ENDOCARDITIS STAPHYLOCOCCAL
     Dosage: 6 MG/KG,24 HOURS
     Route: 042
     Dates: start: 20110801, end: 20110801
  6. AMIODARONE HCL [Concomitant]
     Indication: ATRIAL FIBRILLATION
     Dosage: 200 MG, QD
     Route: 048
     Dates: start: 20110728, end: 20110803
  7. STAPHYLEX [Suspect]
     Indication: ENDOCARDITIS STAPHYLOCOCCAL
     Dosage: 12 G, QD
     Route: 042
     Dates: start: 20110720, end: 20110804
  8. STAPHYLEX [Suspect]
     Indication: ENDOCARDITIS
  9. MAGNESIUM VERLA TABLET [Concomitant]
     Dosage: 10.8 G, QD
     Route: 048
     Dates: end: 20110803
  10. HEPARIN [Concomitant]
     Dosage: UNK
     Route: 042
     Dates: start: 20110716, end: 20110901
  11. DAPTOMYCIN [Suspect]
     Indication: ENDOCARDITIS
     Dosage: 9 MG/KG, DAILY
     Route: 042
     Dates: start: 20110801, end: 20110825
  12. RIFAMPICIN [Suspect]
     Indication: ENDOCARDITIS
     Dosage: 900 MG, QD
     Route: 048
     Dates: start: 20110720, end: 20110804

REACTIONS (10)
  - ENDOCARDITIS STAPHYLOCOCCAL [None]
  - DEVICE EXPULSION [None]
  - BLOOD CREATININE INCREASED [None]
  - WEIGHT DECREASED [None]
  - RENAL FAILURE [None]
  - IMPLANT SITE ABSCESS [None]
  - URINE FLOW DECREASED [None]
  - CARDIOGENIC SHOCK [None]
  - BLOOD CREATINE PHOSPHOKINASE INCREASED [None]
  - DRUG INEFFECTIVE [None]
